FAERS Safety Report 14537780 (Version 2)
Quarter: 2018Q1

REPORT INFORMATION
  Report Type: Report from Study
  Country: US (occurrence: US)
  Receive Date: 20180215
  Receipt Date: 20180219
  Transmission Date: 20180509
  Serious: Yes (Death, Hospitalization)
  Sender: FDA-Public Use
  Company Number: US-009507513-1504USA016929

PATIENT
  Age: 46 Year
  Sex: Female
  Weight: 52.15 kg

DRUGS (20)
  1. SYNTHROID [Concomitant]
     Active Substance: LEVOTHYROXINE SODIUM
     Dosage: 25 MICROGRAM, QD
     Route: 048
  2. PEMBROLIZUMAB. [Suspect]
     Active Substance: PEMBROLIZUMAB
     Dosage: UNK
     Dates: start: 20160912
  3. COLACE [Concomitant]
     Active Substance: DOCUSATE SODIUM
     Dosage: 100 MG, QD
     Route: 048
     Dates: start: 201304
  4. PRINIVIL [Concomitant]
     Active Substance: LISINOPRIL
     Dosage: 5 MG, QD
     Route: 048
     Dates: start: 201404
  5. MIRALAX [Concomitant]
     Active Substance: POLYETHYLENE GLYCOL 3350
     Dosage: UNK
     Route: 048
  6. PEMBROLIZUMAB. [Suspect]
     Active Substance: PEMBROLIZUMAB
     Indication: COLORECTAL CANCER
     Dosage: UNK
     Dates: start: 20150414, end: 20150414
  7. MORPHINE SULFATE. [Concomitant]
     Active Substance: MORPHINE SULFATE
     Dosage: 75 MG, QD, STRENGTH: 10 MG/5 ML
     Route: 048
     Dates: start: 201304
  8. NORCO [Concomitant]
     Active Substance: ACETAMINOPHEN\HYDROCODONE BITARTRATE
     Dosage: 1 TABLET, PRN, STRENGTH: 10-325 MG
     Route: 048
     Dates: start: 201304
  9. ZYRTEC [Concomitant]
     Active Substance: CETIRIZINE HYDROCHLORIDE
     Dosage: 1 TABLET DAILY, PRN
     Route: 048
     Dates: start: 2010
  10. SENNA [Concomitant]
     Active Substance: SENNA LEAF\SENNOSIDES\SENNOSIDES A AND B
     Dosage: 2 TSP, QD
     Route: 048
     Dates: start: 201410
  11. XELODA [Concomitant]
     Active Substance: CAPECITABINE
     Dosage: 2 TABLETS, BID
     Route: 048
  12. CELEXA [Concomitant]
     Active Substance: CITALOPRAM HYDROBROMIDE
     Dosage: 1 TAB, QD
     Route: 048
  13. DESYREL [Concomitant]
     Active Substance: TRAZODONE HYDROCHLORIDE
     Dosage: 50 MG, UNK
     Route: 048
  14. ZOFRAN [Concomitant]
     Active Substance: ONDANSETRON HYDROCHLORIDE
     Dosage: 4MG DAILY, PRN
     Route: 048
     Dates: start: 201304
  15. CLIMARA [Concomitant]
     Active Substance: ESTRADIOL
     Dosage: 0.025 MG/24HR, APPLY TO SKIN
  16. FML [Concomitant]
     Active Substance: FLUOROMETHOLONE
     Dosage: 1 GTT, QID, OPHTALMIC SUSPENSION
  17. DILAUDID [Concomitant]
     Active Substance: HYDROMORPHONE HYDROCHLORIDE
     Dosage: 2 TABLETS DAILY, PRN
     Route: 048
     Dates: start: 201304
  18. ANTIVERT [Concomitant]
     Active Substance: MECLIZINE HYDROCHLORIDE
     Dosage: 12.5 MG DAILY, PRN
     Route: 048
     Dates: start: 201304
  19. PROVERA [Concomitant]
     Active Substance: MEDROXYPROGESTERONE ACETATE
     Dosage: 5 MG, QD
     Route: 048
  20. BACITRACIN ZINC (+) POLYMYXIN B SULFATE [Concomitant]
     Dosage: UNK
     Route: 061

REACTIONS (4)
  - Urinary tract infection [Recovered/Resolved]
  - Myocarditis [Fatal]
  - Uveitis [Not Recovered/Not Resolved]
  - Pyrexia [Recovered/Resolved]

NARRATIVE: CASE EVENT DATE: 20150415
